FAERS Safety Report 21176352 (Version 1)
Quarter: 2022Q3

REPORT INFORMATION
  Report Type: Spontaneous
  Country: US (occurrence: None)
  Receive Date: 20220804
  Receipt Date: 20220804
  Transmission Date: 20221026
  Serious: Yes (Other)
  Sender: FDA-Public Use
  Company Number: None

PATIENT
  Age: 21 Year
  Sex: Female
  Weight: 111.78 kg

DRUGS (1)
  1. BEBTELOVIMAB [Suspect]
     Active Substance: BEBTELOVIMAB
     Indication: COVID-19
     Dosage: FREQUENCY : ONCE;?
     Route: 042
     Dates: start: 20220804, end: 20220804

REACTIONS (5)
  - Chest discomfort [None]
  - Feeling hot [None]
  - Abdominal pain [None]
  - Dizziness [None]
  - Paraesthesia oral [None]

NARRATIVE: CASE EVENT DATE: 20220804
